FAERS Safety Report 6122487-9 (Version None)
Quarter: 2009Q1

REPORT INFORMATION
  Report Type: 
  Country: None (occurrence: None)
  Receive Date: 20090318
  Receipt Date: 20081121
  Transmission Date: 20090719
  Serious: No
  Sender: FDA-Public Use
  Company Number: US-ASTRAZENECA-2008UW26194

PATIENT
  Age: 66 Year
  Sex: Female

DRUGS (15)
  1. SYMBICORT [Suspect]
     Dosage: 160/4.5 UG TWO TIMES DAILY
     Route: 055
  2. ACTOS [Concomitant]
  3. ASPIRIN [Concomitant]
  4. ATENOL/ CHLORTHALIDONE [Concomitant]
  5. CYMBALTA [Concomitant]
  6. DIOVAN [Concomitant]
  7. GEMFIBROZIL [Concomitant]
  8. GLOCOVANCE [Concomitant]
  9. K-DUR [Concomitant]
  10. LASIX [Concomitant]
  11. LIPITOR [Concomitant]
  12. MAG OX [Concomitant]
  13. SPIRIVA [Concomitant]
  14. ZAROXOLYN [Concomitant]
  15. ZOSTAVAX [Concomitant]

REACTIONS (1)
  - HALLUCINATION [None]
